FAERS Safety Report 9067043 (Version 1)
Quarter: 2013Q1

REPORT INFORMATION
  Report Type: Report from Study
  Country: US (occurrence: US)
  Receive Date: 20130214
  Receipt Date: 20130214
  Transmission Date: 20140127
  Serious: Yes (Death)
  Sender: FDA-Public Use
  Company Number: US-ROCHE-1189762

PATIENT
  Age: 36 Year
  Sex: Male

DRUGS (3)
  1. RITUXIMAB [Suspect]
     Indication: MYELOPROLIFERATIVE DISORDER
     Route: 065
  2. BUSULFAN [Concomitant]
  3. FLUDARABINE [Concomitant]

REACTIONS (1)
  - Sepsis [Fatal]
